FAERS Safety Report 6174585-1 (Version None)
Quarter: 2009Q2

REPORT INFORMATION
  Report Type: 
  Country: None (occurrence: None)
  Receive Date: 20090430
  Receipt Date: 20080924
  Transmission Date: 20091009
  Serious: Yes (Other)
  Sender: FDA-Public Use
  Company Number: US-ASTRAZENECA-2008UW16032

PATIENT
  Age: 62 Year
  Sex: Male

DRUGS (7)
  1. NEXIUM [Suspect]
     Indication: GASTROOESOPHAGEAL REFLUX DISEASE
     Route: 048
     Dates: start: 20071201, end: 20080801
  2. NEXIUM [Suspect]
     Indication: GASTRIC ULCER
     Route: 048
     Dates: start: 20071201, end: 20080801
  3. NEXIUM [Suspect]
     Indication: ABDOMINAL DISCOMFORT
     Route: 048
     Dates: start: 20071201, end: 20080801
  4. MYLANTA [Concomitant]
  5. METOPROLOL TARTRATE [Concomitant]
  6. VITAMINS [Concomitant]
  7. ALOE VERA [Concomitant]

REACTIONS (6)
  - ABDOMINAL PAIN UPPER [None]
  - GASTRIC ULCER [None]
  - GASTRITIS [None]
  - HIATUS HERNIA [None]
  - HYPERCHLORHYDRIA [None]
  - REFLUX OESOPHAGITIS [None]
